FAERS Safety Report 7137941-0 (Version None)
Quarter: 2010Q4

REPORT INFORMATION
  Report Type: 
  Country: None (occurrence: None)
  Receive Date: 20101103
  Receipt Date: 20100901
  Transmission Date: 20110411
  Serious: Yes (Other)
  Sender: FDA-Public Use
  Company Number: 2010S1001292

PATIENT
  Age: 65 Year
  Sex: Female

DRUGS (6)
  1. CUBICIN [Suspect]
     Indication: INFECTION
     Dosage: 500 MG; Q24H; IV
     Route: 042
     Dates: start: 20100727
  2. AMOXICILLIN [Concomitant]
  3. TAGACYL [Concomitant]
  4. TRIMETHOPRIM [Concomitant]
  5. TARGOCID [Concomitant]
  6. AVELOX [Concomitant]

REACTIONS (2)
  - ENTEROCOCCAL INFECTION [None]
  - PAIN IN EXTREMITY [None]
